FAERS Safety Report 11478395 (Version 1)
Quarter: 2015Q3

REPORT INFORMATION
  Report Type: Spontaneous
  Country: VE (occurrence: VE)
  Receive Date: 20150909
  Receipt Date: 20150909
  Transmission Date: 20151125
  Serious: Yes (Death, Other)
  Sender: FDA-Public Use
  Company Number: PHHY2015VE096398

PATIENT
  Sex: Male

DRUGS (6)
  1. CLONAZEPAM. [Concomitant]
     Active Substance: CLONAZEPAM
     Dosage: 2 MG, QD
     Route: 048
     Dates: start: 201401
  2. CLONAZEPAM. [Concomitant]
     Active Substance: CLONAZEPAM
     Indication: ANXIOLYTIC THERAPY
     Dosage: 6 MG, QD
     Route: 048
     Dates: start: 2012, end: 201401
  3. OXCARBAZEPINE. [Concomitant]
     Active Substance: OXCARBAZEPINE
     Indication: PRODUCT USED FOR UNKNOWN INDICATION
     Dosage: 1200 MG, QD
     Route: 065
     Dates: start: 2012, end: 201401
  4. LEPONEX [Suspect]
     Active Substance: CLOZAPINE
     Indication: SCHIZOPHRENIA
     Dosage: 50 MG, QD (THEN,  DOSE WAS INCREASED 25 MG WEEKLY)
     Route: 048
     Dates: start: 20131102
  5. LEPONEX [Suspect]
     Active Substance: CLOZAPINE
     Indication: DELIRIUM
     Dosage: 500 MG, QD (100 MG IN THE MORNING AND AFTERNOON AND 300 MG AT NIGHT)
     Route: 048
     Dates: start: 2013
  6. LEPONEX [Suspect]
     Active Substance: CLOZAPINE
     Indication: MANIA

REACTIONS (12)
  - Intestinal dilatation [Fatal]
  - Abdominal discomfort [Fatal]
  - Abdominal pain [Fatal]
  - Septic embolus [Fatal]
  - Pulmonary embolism [Fatal]
  - Colitis ischaemic [Fatal]
  - Gastrointestinal necrosis [Fatal]
  - Leukocytosis [Fatal]
  - Pyrexia [Fatal]
  - Myocarditis [Unknown]
  - Dyspnoea [Fatal]
  - Faecaloma [Fatal]

NARRATIVE: CASE EVENT DATE: 20140223
